FAERS Safety Report 4288408-9 (Version None)
Quarter: 2004Q1

REPORT INFORMATION
  Report Type: 
  Country: None (occurrence: None)
  Receive Date: 20040209
  Receipt Date: 20030929
  Transmission Date: 20041129
  Serious: No
  Sender: FDA-Public Use
  Company Number: US-GLAXOSMITHKLINE-A0427877A

PATIENT
  Age: 66 Year
  Sex: Female

DRUGS (2)
  1. PAXIL [Suspect]
     Indication: DEPRESSION
     Dosage: 20MG PER DAY
     Route: 048
     Dates: start: 20030918, end: 20030918
  2. NORVASC [Concomitant]

REACTIONS (4)
  - ASTHENIA [None]
  - COLD SWEAT [None]
  - NAUSEA [None]
  - NERVOUSNESS [None]
